FAERS Safety Report 8421305-3 (Version None)
Quarter: 2012Q2

REPORT INFORMATION
  Report Type: 
  Country: None (occurrence: None)
  Receive Date: 20120323
  Receipt Date: 20110216
  Transmission Date: 20120825
  Serious: Yes (Other)
  Sender: FDA-Public Use
  Company Number: 163-21880-11022268

PATIENT
  Age: 65 Year
  Sex: Male

DRUGS (3)
  1. REVLIMID [Suspect]
     Indication: MULTIPLE MYELOMA
     Dosage: 20 MG, WITH ONE 5MG X 21 DAYS, PO ; 20 MG, WITH ONE 15MG X 21 DAYS, PO
     Route: 048
     Dates: start: 20100628
  2. REVLIMID [Suspect]
     Indication: MULTIPLE MYELOMA
     Dosage: 20 MG, WITH ONE 5MG X 21 DAYS, PO ; 20 MG, WITH ONE 15MG X 21 DAYS, PO
     Route: 048
     Dates: start: 20100628
  3. REVLIMID [Suspect]

REACTIONS (1)
  - INFECTION [None]
